FAERS Safety Report 4978235-9 (Version None)
Quarter: 2006Q2

REPORT INFORMATION
  Report Type: 
  Country: None (occurrence: None)
  Receive Date: 20060417
  Receipt Date: 20060404
  Transmission Date: 20061013
  Serious: Yes (Death, Hospitalization)
  Sender: FDA-Public Use
  Company Number: 232095K06USA

PATIENT
  Age: 57 Year
  Sex: Female

DRUGS (7)
  1. REBIF [Suspect]
     Indication: MULTIPLE SCLEROSIS
     Dosage: 44 MCG, 3 IN 1 WEEKS, SUBCUTANEOUS
     Route: 058
     Dates: start: 20040128
  2. NOVANTRONE [Suspect]
     Indication: MULTIPLE SCLEROSIS
     Dates: end: 20030101
  3. BACLOFEN [Concomitant]
  4. DURAGESIC (FENTANYL /00174601/) [Concomitant]
  5. NEURONTIN [Concomitant]
  6. ALPRAZOLAM [Concomitant]
  7. AMBIEN (ZOPIDEM TARTRATE) [Concomitant]

REACTIONS (7)
  - ALCOHOL POISONING [None]
  - CARDIAC FAILURE [None]
  - DEPRESSION [None]
  - DRUG LEVEL INCREASED [None]
  - LUNG DISORDER [None]
  - MENTAL DISORDER [None]
  - OVERDOSE [None]
